FAERS Safety Report 6290225-5 (Version None)
Quarter: 2009Q3

REPORT INFORMATION
  Report Type: 
  Country: None (occurrence: None)
  Receive Date: 20090730
  Receipt Date: 20090116
  Transmission Date: 20100115
  Serious: No
  Sender: FDA-Public Use
  Company Number: US-BRISTOL-MYERS SQUIBB COMPANY-14474787

PATIENT
  Age: 62 Year
  Sex: Female
  Weight: 82 kg

DRUGS (2)
  1. COUMADIN [Suspect]
     Dosage: 1 DOSAGE FORM = 5.5MG OR 7MG
  2. WARFARIN SODIUM [Suspect]
     Dosage: 1 DOSAGE FORM = 5.5MG OR 7MG

REACTIONS (1)
  - ALOPECIA [None]
